FAERS Safety Report 8249951 (Version 2)
Quarter: 2014Q3

REPORT INFORMATION
  Report Type: Spontaneous
  Country: US (occurrence: US)
  Receive Date: 20111117
  Receipt Date: 20140707
  Transmission Date: 20150326
  Serious: Yes (Other)
  Sender: FDA-Public Use
  Company Number: US-AMGEN-USASP2010005367

PATIENT
  Age: 30 Year
  Sex: Female

DRUGS (1)
  1. ENBREL [Suspect]
     Active Substance: ETANERCEPT
     Indication: RHEUMATOID ARTHRITIS
     Dosage: 50 MG, QWK
     Route: 058
     Dates: start: 20091119

REACTIONS (4)
  - Blood urine present [Not Recovered/Not Resolved]
  - Leukopenia [Recovered/Resolved]
  - White blood cell count abnormal [Unknown]
  - Toothache [Recovered/Resolved]

NARRATIVE: CASE EVENT DATE: 20101104
